FAERS Safety Report 14592158 (Version 1)
Quarter: 2018Q1

REPORT INFORMATION
  Report Type: Spontaneous
  Country: US (occurrence: US)
  Receive Date: 20180301
  Receipt Date: 20180301
  Transmission Date: 20180509
  Serious: Yes (Other)
  Sender: FDA-Public Use
  Company Number: None

PATIENT
  Age: 21 Month
  Sex: Male
  Weight: 12.15 kg

DRUGS (2)
  1. AMOXICILLIN 400/5ML SUS TEVA USA [Suspect]
     Active Substance: AMOXICILLIN
     Indication: EAR INFECTION
     Dosage: ?          QUANTITY:100 ML;?
     Route: 048
  2. MULTIVITAMIN [Concomitant]
     Active Substance: VITAMINS

REACTIONS (1)
  - Urticaria [None]

NARRATIVE: CASE EVENT DATE: 20180227
